FAERS Safety Report 13399081 (Version 2)
Quarter: 2017Q2

REPORT INFORMATION
  Report Type: Spontaneous
  Country: AT (occurrence: AT)
  Receive Date: 20170404
  Receipt Date: 20170414
  Transmission Date: 20170830
  Serious: Yes (Death, Life-Threatening, Hospitalization)
  Sender: FDA-Public Use
  Company Number: AT-B.I. PHARMACEUTICALS,INC./RIDGEFIELD-2017-BI-019147

PATIENT
  Sex: Male
  Weight: 125 kg

DRUGS (5)
  1. JARDIANCE [Suspect]
     Active Substance: EMPAGLIFLOZIN
     Indication: TYPE 2 DIABETES MELLITUS
     Route: 048
     Dates: end: 2016
  2. SEVIKAR HCT [Concomitant]
     Active Substance: AMLODIPINE BESYLATE\HYDROCHLOROTHIAZIDE\OLMESARTAN MEDOXOMIL
     Indication: PRODUCT USED FOR UNKNOWN INDICATION
     Dosage: DOSE: 40/5/12.5
     Route: 065
  3. NOMEXOR 5 [Concomitant]
     Indication: PRODUCT USED FOR UNKNOWN INDICATION
     Dosage: DOSE: 5     DAILY DOSE: 2.5
     Route: 065
  4. DIABETEX [Concomitant]
     Indication: DIABETES MELLITUS
     Dosage: STRENGTH AND UNIT DOSE: 1000   DAILY DOSE: 2000
     Route: 065
  5. ENBREL [Concomitant]
     Active Substance: ETANERCEPT
     Indication: PSORIASIS
     Dosage: STRENGTH AND UNIT DOSE: 50
     Route: 065

REACTIONS (3)
  - Urosepsis [Recovered/Resolved]
  - Death [Fatal]
  - Urinary tract infection [Unknown]
